FAERS Safety Report 23950981 (Version 1)
Quarter: 2024Q2

REPORT INFORMATION
  Report Type: Report from Study
  Country: US (occurrence: US)
  Receive Date: 20240607
  Receipt Date: 20240607
  Transmission Date: 20240716
  Serious: No
  Sender: FDA-Public Use
  Company Number: US-SPRINGWORKS THERAPEUTICS-SW-001583

PATIENT
  Sex: Male

DRUGS (2)
  1. NIROGACESTAT [Suspect]
     Active Substance: NIROGACESTAT
     Indication: Desmoid tumour
     Dosage: 50 MILLIGRAM, QD
     Route: 048
     Dates: start: 20240416, end: 202404
  2. NIROGACESTAT [Suspect]
     Active Substance: NIROGACESTAT
     Dosage: 50 MILLIGRAM, QD
     Route: 048
     Dates: start: 20240426

REACTIONS (13)
  - Paraesthesia [Not Recovered/Not Resolved]
  - Taste disorder [Recovered/Resolved]
  - Suicidal ideation [Recovered/Resolved]
  - Parosmia [Recovered/Resolved]
  - Nocturia [Recovered/Resolved]
  - Sleep apnoea syndrome [Recovered/Resolved]
  - Insomnia [Recovered/Resolved]
  - Infrequent bowel movements [Not Recovered/Not Resolved]
  - Hyperhidrosis [Recovered/Resolved]
  - Dysphonia [Recovered/Resolved]
  - Faeces discoloured [Recovered/Resolved]
  - Fatigue [Recovered/Resolved]
  - Underdose [Unknown]
